FAERS Safety Report 4945233-0 (Version None)
Quarter: 2006Q1

REPORT INFORMATION
  Report Type: 
  Country: None (occurrence: None)
  Receive Date: 20060118
  Receipt Date: 20050209
  Transmission Date: 20060701
  Serious: Yes (Hospitalization)
  Sender: FDA-Public Use
  Company Number: US-JNJFOC-20040907127

PATIENT
  Age: 53 Year
  Sex: Female
  Weight: 73.3 kg

DRUGS (15)
  1. DOXIL [Suspect]
     Indication: OVARIAN CANCER
     Dosage: 94 MG, 1 IN 4 WEEK, INTRAVENOUS ; 92 MG, 1 IN 4 WEEK, INTRAVENOUS
     Route: 042
     Dates: start: 20040721, end: 20040721
  2. DOXIL [Suspect]
     Indication: OVARIAN CANCER
     Dosage: 94 MG, 1 IN 4 WEEK, INTRAVENOUS ; 92 MG, 1 IN 4 WEEK, INTRAVENOUS
     Route: 042
     Dates: start: 20040820
  3. TLK286 (ANTINEOPLASTIC AGENTS) [Suspect]
     Indication: OVARIAN CANCER
     Dosage: 1795 MG, 1 IN 4 WEEK, INTRAVENOUS ; 1405 MG, 1 IN 4 WEEK, INTRAVENOUS
     Route: 042
     Dates: start: 20040721, end: 20040721
  4. TLK286 (ANTINEOPLASTIC AGENTS) [Suspect]
     Indication: OVARIAN CANCER
     Dosage: 1795 MG, 1 IN 4 WEEK, INTRAVENOUS ; 1405 MG, 1 IN 4 WEEK, INTRAVENOUS
     Route: 042
     Dates: start: 20040820, end: 20040820
  5. TLK286 (ANTINEOPLASTIC AGENTS) [Suspect]
     Indication: OVARIAN CANCER
     Dosage: 1795 MG, 1 IN 4 WEEK, INTRAVENOUS ; 1405 MG, 1 IN 4 WEEK, INTRAVENOUS
     Route: 042
     Dates: start: 20040916
  6. ... [Suspect]
  7. DEXAMETHASONE [Concomitant]
  8. BENADRYL [Concomitant]
  9. ONDANSETRON [Concomitant]
  10. ATIVAN [Concomitant]
  11. PREVACID [Concomitant]
  12. COMPAZINE [Concomitant]
  13. NEOPOGEN (FILGRASTIM) [Concomitant]
  14. PROCRIT [Concomitant]
  15. FLUCONAZOLE [Concomitant]

REACTIONS (3)
  - ANAEMIA [None]
  - FEBRILE NEUTROPENIA [None]
  - STOMATITIS [None]
